FAERS Safety Report 8789317 (Version 1)
Quarter: 2012Q4

REPORT INFORMATION
  Report Type: Spontaneous
  Country: US (occurrence: None)
  Receive Date: 20120904
  Receipt Date: 20120904
  Transmission Date: 20130627
  Serious: Yes (Hospitalization)
  Sender: FDA-Public Use
  Company Number: ACO_31715_2012

PATIENT
  Sex: Male

DRUGS (2)
  1. AMPYRA [Suspect]
     Indication: DRUG USE FOR UNKNOWN INDICATION
     Dates: start: 201102
  2. COPAXONE [Concomitant]

REACTIONS (2)
  - Choking sensation [None]
  - Dyspepsia [None]
